FAERS Safety Report 25602705 (Version 1)
Quarter: 2025Q3

REPORT INFORMATION
  Report Type: Spontaneous
  Country: JP (occurrence: JP)
  Receive Date: 20250724
  Receipt Date: 20250724
  Transmission Date: 20251020
  Serious: Yes (Other)
  Sender: INSUD PHARMA
  Company Number: JP-INSUD PHARMA-2507JP05959

PATIENT

DRUGS (6)
  1. NUVESSA [Suspect]
     Active Substance: METRONIDAZOLE
     Indication: Spinal cord abscess
     Dosage: 500 MILLIGRAM, QD
     Route: 048
  2. VANCOMYCIN [Suspect]
     Active Substance: VANCOMYCIN
     Indication: Spinal cord abscess
     Dosage: 2-3 G/DAY
     Route: 042
  3. CEFTRIAXONE [Concomitant]
     Active Substance: CEFTRIAXONE
     Indication: Spinal cord abscess
     Dosage: 4 GRAM, QD
     Route: 065
  4. CEFTRIAXONE [Concomitant]
     Active Substance: CEFTRIAXONE
     Dosage: 2 GRAM, QD
  5. METHYLPREDNISOLONE [Concomitant]
     Active Substance: METHYLPREDNISOLONE
     Indication: Radiculopathy
     Dosage: 1000 MG/DAY, FOR 3 DAYS
     Route: 065
  6. OXYGEN [Concomitant]
     Active Substance: OXYGEN
     Indication: Spinal cord abscess

REACTIONS (4)
  - Drug reaction with eosinophilia and systemic symptoms [Recovered/Resolved]
  - Rash [Recovered/Resolved]
  - Decreased appetite [Recovered/Resolved]
  - Eosinophilia [Recovered/Resolved]

NARRATIVE: CASE EVENT DATE: 20210101
